FAERS Safety Report 8924746 (Version 1)
Quarter: 2012Q4

REPORT INFORMATION
  Report Type: 
  Country: GB (occurrence: GB)
  Receive Date: 20121126
  Receipt Date: 20121126
  Transmission Date: 20130627
  Serious: Yes (Hospitalization)
  Sender: FDA-Public Use
  Company Number: GB-PFIZER INC-2012293994

PATIENT
  Age: 67 Year
  Sex: Female
  Weight: 107 kg

DRUGS (10)
  1. GENOTROPIN [Suspect]
     Dosage: 0.4 mg, 1x/day, 7 injections/week
     Route: 058
     Dates: start: 20040407
  2. HYDROCORTISONE [Concomitant]
     Indication: ACTH DECREASED
     Dosage: UNK
     Dates: start: 19900301
  3. DESMOSPRAY [Concomitant]
     Indication: HYPOTHALAMO-PITUITARY DISORDER
     Dosage: UNK
     Dates: start: 19900303
  4. LEVOTHYROXINE [Concomitant]
     Indication: TSH DECREASED
     Dosage: UNK
     Dates: start: 19900511
  5. LEVOTHYROXINE [Concomitant]
     Indication: PRIMARY HYPOTHYROIDISM
  6. TIBOLONE [Concomitant]
     Indication: LUTEINISING HORMONE DEFICIENCY
     Dosage: UNK
     Dates: start: 19920114
  7. TIBOLONE [Concomitant]
     Indication: FOLLICLE-STIMULATING HORMONE DEFICIENCY
  8. TIBOLONE [Concomitant]
     Indication: OVARIAN DISORDER
  9. TIBOLONE [Concomitant]
     Indication: HYPOGONADISM
  10. ANALGESIC BALM [Concomitant]
     Indication: GALLBLADDER DISORDER
     Dosage: UNK
     Dates: start: 19950508

REACTIONS (1)
  - Malaise [Unknown]
